FAERS Safety Report 7866878-4 (Version None)
Quarter: 2011Q4

REPORT INFORMATION
  Report Type: 
  Country: None (occurrence: None)
  Receive Date: 20111028
  Receipt Date: 20111025
  Transmission Date: 20120403
  Serious: Yes (Other)
  Sender: FDA-Public Use
  Company Number: US-PFIZER INC-2011243378

PATIENT
  Sex: Male

DRUGS (1)
  1. ROBITUSSIN PEAK COLD MULTI-SYMPTOM COLD [Suspect]
     Dosage: UNK
     Route: 065

REACTIONS (4)
  - PAIN [None]
  - HAEMATEMESIS [None]
  - CHEST PAIN [None]
  - NASOPHARYNGITIS [None]
